FAERS Safety Report 9388030 (Version 1)
Quarter: 2013Q3

REPORT INFORMATION
  Report Type: Spontaneous
  Country: JP (occurrence: JP)
  Receive Date: 20130708
  Receipt Date: 20130708
  Transmission Date: 20140515
  Serious: Yes (Other)
  Sender: FDA-Public Use
  Company Number: JP-SANOFI-AVENTIS-2013SA067749

PATIENT
  Age: 68 Year
  Sex: Male

DRUGS (6)
  1. DOCETAXEL [Suspect]
     Indication: OESOPHAGEAL CARCINOMA
     Route: 065
  2. DOCETAXEL [Suspect]
     Indication: OESOPHAGEAL CARCINOMA
     Route: 065
  3. CISPLATIN [Suspect]
     Indication: OESOPHAGEAL CARCINOMA
     Route: 065
  4. CISPLATIN [Suspect]
     Indication: OESOPHAGEAL CARCINOMA
     Route: 065
  5. FLUOROURACIL [Suspect]
     Indication: OESOPHAGEAL CARCINOMA
     Route: 065
  6. FLUOROURACIL [Suspect]
     Indication: OESOPHAGEAL CARCINOMA
     Route: 065

REACTIONS (5)
  - Posterior reversible encephalopathy syndrome [Recovering/Resolving]
  - Headache [Recovering/Resolving]
  - Dizziness [Recovering/Resolving]
  - Nausea [Recovering/Resolving]
  - Haemorrhage [Unknown]
